FAERS Safety Report 7766810-8 (Version None)
Quarter: 2011Q3

REPORT INFORMATION
  Report Type: 
  Country: None (occurrence: None)
  Receive Date: 20110922
  Receipt Date: 20110519
  Transmission Date: 20111222
  Serious: No
  Sender: FDA-Public Use
  Company Number: US-ASTRAZENECA-2011SE30864

PATIENT
  Age: 47 Year
  Sex: Female

DRUGS (7)
  1. LAMOTRIGINE [Concomitant]
  2. LASIX [Concomitant]
  3. GENERIC CELEXA [Concomitant]
  4. GENERIC ATIVAN [Concomitant]
  5. SEROQUEL [Suspect]
     Indication: BIPOLAR DISORDER
     Route: 048
     Dates: start: 20080101
  6. SINGULAIR [Concomitant]
  7. ASTHMA INHALER [Concomitant]

REACTIONS (3)
  - AGITATION [None]
  - DRUG DOSE OMISSION [None]
  - ANXIETY [None]
